FAERS Safety Report 16682358 (Version 1)
Quarter: 2019Q3

REPORT INFORMATION
  Report Type: Spontaneous
  Country: DE (occurrence: DE)
  Receive Date: 20190808
  Receipt Date: 20190808
  Transmission Date: 20191004
  Serious: Yes (Life-Threatening)
  Sender: FDA-Public Use
  Company Number: DE-009507513-1908DEU001623

PATIENT
  Age: 53 Year
  Sex: Female
  Weight: 79 kg

DRUGS (16)
  1. SITAGLIPTIN PHOSPHATE [Suspect]
     Active Substance: SITAGLIPTIN PHOSPHATE
     Indication: INSULIN-REQUIRING TYPE 2 DIABETES MELLITUS
     Dosage: DAILY DOSE: 100 MILLGRAM(S) EVERY DAYS; 2 SEPARATED DOSES
     Route: 048
     Dates: start: 2010, end: 2013
  2. SAB SIMPLEX [Concomitant]
     Dosage: DAILY DOSE: 3 DOSAGE FORM EVERY DAYS; 3 SEPARATED DOSES)
  3. LIRAGLUTIDE [Suspect]
     Active Substance: LIRAGLUTIDE
     Indication: INSULIN-REQUIRING TYPE 2 DIABETES MELLITUS
     Dosage: 1 DOSAGE FORM, QD (1.2 MG ? 1.8 MG DAILY)
     Route: 048
     Dates: start: 2013, end: 2017
  4. ONDANSETRON [Concomitant]
     Active Substance: ONDANSETRON
     Indication: DIARRHOEA
     Dosage: 4 MILLIGRAM, ADMINISTRATION UP TO 4 DAILY
  5. FORTIMEL [Concomitant]
     Active Substance: DIETARY SUPPLEMENT
     Dosage: DAILY DOSE: 2 DOSAGE FORM EVERY DAYS; 2 SEPARATED DOSES
  6. HUMALOG [Concomitant]
     Active Substance: INSULIN LISPRO
     Dosage: UNK
  7. SPIRONOLACTONE. [Concomitant]
     Active Substance: SPIRONOLACTONE
     Dosage: DAILY DOSE: 25 MILLGRAM(S) EVERY DAYS
  8. TAVOR EXPIDET [Concomitant]
     Active Substance: LORAZEPAM
     Dosage: 0.5 MILLIGRAM, EVERY DAY
  9. FENTANYL. [Concomitant]
     Active Substance: FENTANYL
     Dosage: DAILY DOSE: 75 MICROGRAM(S) EVERY 3 DAYS
  10. VOMEX A [Concomitant]
     Active Substance: DIMENHYDRINATE
     Indication: NAUSEA
     Dosage: ADMINISTRATION UP TO 3 DAILY
     Route: 042
  11. PALLADON [Concomitant]
     Active Substance: HYDROMORPHONE
     Dosage: 2 MILLIGRAM, UPON PAIN SPIKES UP TO 3X DAILY
     Route: 042
  12. NUTRIFLEX LIPID PLUS [Concomitant]
     Active Substance: AMINO ACIDS\DEXTROSE\ELECTROLYTES NOS\SOYBEAN OIL
     Dosage: 1250 MILLILITER
  13. LOPERAMID [Concomitant]
     Active Substance: LOPERAMIDE
     Indication: DIARRHOEA
     Dosage: UP TO 12/DAILY
  14. PANTOPRAZOLE [Concomitant]
     Active Substance: PANTOPRAZOLE
     Dosage: DAILY DOSE: 40 MILLGRAM(S) EVERY DAYS
  15. FUROSEMIDE. [Concomitant]
     Active Substance: FUROSEMIDE
     Dosage: DAILY DOSE: 125 MILLGRAM(S) EVERY DAYS
  16. TOUJEO [Concomitant]
     Active Substance: INSULIN GLARGINE
     Dosage: DAILY DOSE: 30 INTERNATIONAL UNIT(S) EVERY DAYS

REACTIONS (3)
  - Pancreatic carcinoma [Unknown]
  - Metastases to liver [Unknown]
  - Malignant peritoneal neoplasm [Unknown]

NARRATIVE: CASE EVENT DATE: 201904
